FAERS Safety Report 6165896-4 (Version None)
Quarter: 2009Q2

REPORT INFORMATION
  Report Type: 
  Country: None (occurrence: None)
  Receive Date: 20090422
  Receipt Date: 20090414
  Transmission Date: 20091009
  Serious: Yes (Hospitalization)
  Sender: FDA-Public Use
  Company Number: ADE2009-0562

PATIENT
  Sex: Female

DRUGS (2)
  1. SIMVASTATIN [Suspect]
     Indication: BLOOD CHOLESTEROL INCREASED
     Dosage: 40MG, DAILY, ORAL
     Route: 048
     Dates: start: 20081201
  2. SIMVASTATIN [Suspect]
     Indication: BLOOD CHOLESTEROL INCREASED
     Dosage: 10MG, DAILY, ORAL
     Route: 048
     Dates: start: 20060101, end: 20081201

REACTIONS (3)
  - ALOPECIA [None]
  - DYSPHAGIA [None]
  - EATING DISORDER [None]
